FAERS Safety Report 11259747 (Version 1)
Quarter: 2015Q3

REPORT INFORMATION
  Report Type: Spontaneous
  Country: US (occurrence: None)
  Receive Date: 20150709
  Receipt Date: 20150709
  Transmission Date: 20151125
  Serious: Yes (Other)
  Sender: FDA-Public Use
  Company Number: None

PATIENT
  Age: 40 Year
  Sex: Female
  Weight: 58.97 kg

DRUGS (3)
  1. ONLY WOMEN VITAMIN GUMMIES [Concomitant]
  2. EFFEXOR [Concomitant]
     Active Substance: VENLAFAXINE HYDROCHLORIDE
  3. CLINIQUE ACNE SOLUTIONS ALL OVER CLINIQUE [Suspect]
     Active Substance: BENZOYL PEROXIDE
     Indication: ACNE
     Dosage: APPLY THIN LAYER
     Route: 061

REACTIONS (1)
  - Hypersensitivity [None]

NARRATIVE: CASE EVENT DATE: 20150703
